FAERS Safety Report 8138326 (Version 5)
Quarter: 2014Q2

REPORT INFORMATION
  Report Type: Spontaneous
  Country: US (occurrence: US)
  Receive Date: 20110915
  Receipt Date: 20140505
  Transmission Date: 20141212
  Serious: Yes (Hospitalization, Other)
  Sender: FDA-Public Use
  Company Number: US-BAYER-2011-083290

PATIENT
  Age: 29 Year
  Sex: Female

DRUGS (5)
  1. YASMIN [Suspect]
     Dosage: UNK
     Dates: start: 200506, end: 2006
  2. HYDROCODONE [Concomitant]
     Dosage: UNK
     Dates: start: 20091230
  3. VICODIN [Concomitant]
     Dosage: 5-325
     Dates: start: 20091230
  4. MOTRIN [Concomitant]
     Indication: PAIN
     Dosage: 800 MG PRN
     Route: 048
     Dates: start: 20091230
  5. NAPARIAN [Concomitant]
     Dosage: 750 MG, QD
     Dates: start: 20100115

REACTIONS (7)
  - Cholecystectomy [None]
  - Cholecystitis [None]
  - Injury [None]
  - Pain [None]
  - Anxiety [None]
  - Emotional distress [None]
  - Anhedonia [None]
